FAERS Safety Report 9957076 (Version 1)
Quarter: 2014Q1

REPORT INFORMATION
  Report Type: Report from Study
  Country: US (occurrence: US)
  Receive Date: 20140304
  Receipt Date: 20140304
  Transmission Date: 20141002
  Serious: No
  Sender: FDA-Public Use
  Company Number: US-ABBVIE-13P-163-1099547-00

PATIENT
  Sex: Female
  Weight: 77.18 kg

DRUGS (8)
  1. HUMIRA [Suspect]
     Indication: ANKYLOSING SPONDYLITIS
     Route: 058
     Dates: start: 201301
  2. HUMIRA [Suspect]
     Indication: IRITIS
  3. PLAQUENIL [Concomitant]
     Indication: ANKYLOSING SPONDYLITIS
  4. METHOTREXATE [Concomitant]
     Indication: ANKYLOSING SPONDYLITIS
  5. PROZAC [Concomitant]
     Indication: DEPRESSION
  6. SPRINTEC [Concomitant]
     Indication: CONTRACEPTION
  7. NEXIUM [Concomitant]
     Indication: GASTROOESOPHAGEAL REFLUX DISEASE
  8. ALBUTEROL [Concomitant]
     Indication: ASTHMA
     Route: 055

REACTIONS (7)
  - Hypersensitivity [Not Recovered/Not Resolved]
  - Rash pruritic [Recovered/Resolved]
  - Unevaluable event [Unknown]
  - Urticaria [Recovered/Resolved]
  - Impaired healing [Not Recovered/Not Resolved]
  - Vomiting [Recovered/Resolved]
  - Fatigue [Recovered/Resolved]
